FAERS Safety Report 5252064-3 (Version None)
Quarter: 2007Q1

REPORT INFORMATION
  Report Type: 
  Country: None (occurrence: None)
  Receive Date: 20070227
  Receipt Date: 20070223
  Transmission Date: 20070707
  Serious: Yes (Other)
  Sender: FDA-Public Use
  Company Number: DAV-AE-MTX-07-007

PATIENT
  Sex: Female

DRUGS (9)
  1. METHOTREXATE [Suspect]
     Indication: JUVENILE ARTHRITIS
     Dosage: ORAL
     Dates: start: 20040401
  2. METHOTREXATE [Suspect]
     Indication: JUVENILE ARTHRITIS
     Dosage: SQ
     Route: 058
     Dates: start: 20060201
  3. ETANERCEPT [Concomitant]
  4. INDOMETHACIN [Concomitant]
  5. FOLIC ACID [Concomitant]
  6. PANCREATIN TRIPLE STRENGTH CAP [Concomitant]
  7. VITAMIN A [Concomitant]
  8. VITAMIN D [Concomitant]
  9. VITAMIN E [Concomitant]

REACTIONS (2)
  - CYSTIC FIBROSIS [None]
  - MENORRHAGIA [None]
